FAERS Safety Report 9059343 (Version 2)
Quarter: 2013Q1

REPORT INFORMATION
  Report Type: Spontaneous
  Country: IT (occurrence: IT)
  Receive Date: 20130211
  Receipt Date: 20130304
  Transmission Date: 20140127
  Serious: Yes (Death)
  Sender: FDA-Public Use
  Company Number: IT-MEDICIS-2013P1002001

PATIENT
  Age: 5 Year
  Sex: Female
  Weight: 15 kg

DRUGS (1)
  1. AMMONUL [Suspect]

REACTIONS (2)
  - Coma [Fatal]
  - Hyperammonaemia [Fatal]
